FAERS Safety Report 18667306 (Version 1)
Quarter: 2020Q4

REPORT INFORMATION
  Report Type: Report from Study
  Country: US (occurrence: US)
  Receive Date: 20201228
  Receipt Date: 20201228
  Transmission Date: 20210114
  Serious: Yes (Hospitalization)
  Sender: FDA-Public Use
  Company Number: US-JNJFOC-20190626010

PATIENT
  Age: 61 Year
  Sex: Female
  Weight: 87.3 kg

DRUGS (26)
  1. USTEKINUMAB [Suspect]
     Active Substance: USTEKINUMAB
     Route: 058
     Dates: start: 20190603
  2. FLUOXETINE [Concomitant]
     Active Substance: FLUOXETINE HYDROCHLORIDE
     Indication: DEPRESSION
     Route: 048
     Dates: start: 201409
  3. GABAPENTIN. [Concomitant]
     Active Substance: GABAPENTIN
     Indication: BACK PAIN
     Route: 048
     Dates: start: 201510
  4. PRIMIDONE. [Concomitant]
     Active Substance: PRIMIDONE
     Indication: TREMOR
     Route: 048
     Dates: start: 201505
  5. USTEKINUMAB [Suspect]
     Active Substance: USTEKINUMAB
     Dosage: WEEK 40
     Route: 058
     Dates: start: 20191120
  6. USTEKINUMAB [Suspect]
     Active Substance: USTEKINUMAB
     Dosage: WEEK 56
     Route: 058
     Dates: start: 20200309
  7. ONDANSETRON [Concomitant]
     Active Substance: ONDANSETRON
     Indication: NAUSEA
     Route: 048
     Dates: start: 20200512
  8. LOVASTATIN. [Concomitant]
     Active Substance: LOVASTATIN
     Indication: TYPE V HYPERLIPIDAEMIA
     Route: 048
     Dates: start: 2009
  9. ACETAMINOPHEN. [Concomitant]
     Active Substance: ACETAMINOPHEN
     Indication: SYSTEMIC LUPUS ERYTHEMATOSUS
     Route: 048
     Dates: start: 2012
  10. PLAQUENIL [HYDROXYCHLOROQUINE PHOSPHATE] [Concomitant]
     Active Substance: HYDROXYCHLOROQUINE DIPHOSPHATE
     Indication: SYSTEMIC LUPUS ERYTHEMATOSUS
     Route: 048
     Dates: start: 2013
  11. ALPRAZOLAM. [Concomitant]
     Active Substance: ALPRAZOLAM
     Indication: ANXIETY
     Route: 048
     Dates: start: 2002
  12. ASMANEX [Concomitant]
     Active Substance: MOMETASONE FUROATE
     Indication: ASTHMA
     Route: 065
     Dates: start: 2017
  13. KETOROLAC [Concomitant]
     Active Substance: KETOROLAC TROMETHAMINE
     Route: 065
     Dates: start: 20190612, end: 20190614
  14. USTEKINUMAB [Suspect]
     Active Substance: USTEKINUMAB
     Dosage: WEEK 48
     Route: 058
     Dates: start: 20200113
  15. VENTOLIN HFA [Concomitant]
     Active Substance: ALBUTEROL SULFATE
     Indication: ASTHMA
  16. RESTASIS [Concomitant]
     Active Substance: CYCLOSPORINE
     Indication: SJOGREN^S SYNDROME
     Route: 065
     Dates: start: 201606
  17. HEPARIN [Concomitant]
     Active Substance: HEPARIN SODIUM
     Route: 065
     Dates: start: 20190613, end: 20190614
  18. USTEKINUMAB [Suspect]
     Active Substance: USTEKINUMAB
     Dosage: WEEK 64
     Route: 058
     Dates: start: 20200504
  19. USTEKINUMAB [Suspect]
     Active Substance: USTEKINUMAB
     Dosage: WEEK 24
     Route: 058
     Dates: start: 20190729
  20. SYNTHROID [Concomitant]
     Active Substance: LEVOTHYROXINE SODIUM
     Indication: HYPOTHYROIDISM
     Route: 048
     Dates: start: 201301
  21. OMEGA 3 C C10 C10A C10AX [Concomitant]
     Indication: NUTRITIONAL SUPPLEMENTATION
     Route: 048
     Dates: start: 2000
  22. USTEKINUMAB [Suspect]
     Active Substance: USTEKINUMAB
     Indication: SYSTEMIC LUPUS ERYTHEMATOSUS
     Route: 042
     Dates: start: 20190211
  23. ROSUVASTATIN. [Concomitant]
     Active Substance: ROSUVASTATIN
     Indication: TYPE V HYPERLIPIDAEMIA
     Route: 048
     Dates: start: 20190723
  24. IMURAN [Concomitant]
     Active Substance: AZATHIOPRINE
     Indication: SYSTEMIC LUPUS ERYTHEMATOSUS
     Route: 048
     Dates: start: 2013
  25. LISINOPRIL/HCTZ [Concomitant]
     Active Substance: HYDROCHLOROTHIAZIDE\LISINOPRIL
     Indication: HYPERTENSION
     Dosage: 20-25 MILLIGRAN
     Route: 048
     Dates: start: 2009
  26. LEKOVIT CA [Concomitant]
     Active Substance: CALCIUM CARBONATE\CHOLECALCIFEROL
     Indication: NUTRITIONAL SUPPLEMENTATION
     Route: 048
     Dates: start: 2003

REACTIONS (1)
  - Infected bite [Recovered/Resolved]

NARRATIVE: CASE EVENT DATE: 20190612
